FAERS Safety Report 9576550 (Version 1)
Quarter: 2013Q4

REPORT INFORMATION
  Report Type: Spontaneous
  Country: US (occurrence: US)
  Receive Date: 20131001
  Receipt Date: 20131001
  Transmission Date: 20140711
  Serious: No
  Sender: FDA-Public Use
  Company Number: US-AMGEN-USASP2013003219

PATIENT
  Age: 41 Year
  Sex: Female
  Weight: 86.17 kg

DRUGS (18)
  1. ENBREL [Suspect]
     Indication: PSORIATIC ARTHROPATHY
     Dosage: 50 MG, QWK
     Route: 058
  2. SINGULAIR [Concomitant]
     Dosage: 10 MG, UNK
     Route: 048
  3. PROTONIX [Concomitant]
     Dosage: 20 MG, UNK
     Route: 048
  4. SOMA [Concomitant]
     Dosage: 350 MG, UNK
     Route: 048
  5. PREMPRO [Concomitant]
     Dosage: 625-2.5
     Route: 048
  6. METHOTREXATE [Concomitant]
     Dosage: 2.5 MG, UNK
     Route: 048
  7. TRAMADOL HCL [Concomitant]
     Dosage: 50 MG, UNK
     Route: 048
  8. FLUOCIN                            /00081501/ [Concomitant]
     Dosage: 0.01 %, UNK
  9. VITAMIN E                          /00110501/ [Concomitant]
     Dosage: 1000 UNIT, UNK
     Route: 048
  10. METANX [Concomitant]
     Dosage: UNK
     Route: 048
  11. MULTIVITAMINS, PLAIN [Concomitant]
     Dosage: UNK
  12. MINERALS NOS [Concomitant]
     Dosage: UNK
     Route: 048
  13. MOBIC [Concomitant]
     Dosage: 15 MG, UNK
     Route: 048
  14. VITAMIN C                          /00008001/ [Concomitant]
     Dosage: 500 MG, UNK
     Route: 048
  15. CALCIUM D                          /00944201/ [Concomitant]
     Dosage: UNK
     Route: 048
  16. MAXZIDE [Concomitant]
     Dosage: 75-50
     Route: 048
  17. IRON [Concomitant]
     Dosage: UNK
     Route: 048
  18. MAGNESIUM [Concomitant]
     Dosage: 300 MG, UNK
     Route: 048

REACTIONS (1)
  - Injection site pain [Unknown]
